FAERS Safety Report 7969242-2 (Version None)
Quarter: 2011Q4

REPORT INFORMATION
  Report Type: 
  Country: None (occurrence: None)
  Receive Date: 20111209
  Receipt Date: 20111205
  Transmission Date: 20120403
  Serious: Yes (Hospitalization, Other)
  Sender: FDA-Public Use
  Company Number: US-MERCK-1109USA02411

PATIENT
  Age: 61 Year
  Sex: Female

DRUGS (8)
  1. VITAMIN D (UNSPECIFIED) [Concomitant]
     Indication: OSTEOPENIA
     Route: 065
  2. OS-CAL [Concomitant]
     Indication: OSTEOPENIA
     Route: 065
  3. OS-CAL [Concomitant]
     Indication: OSTEOPOROSIS POSTMENOPAUSAL
     Route: 065
  4. FOSAMAX [Suspect]
     Indication: OSTEOPOROSIS POSTMENOPAUSAL
     Route: 048
     Dates: start: 19990101, end: 20060301
  5. FOSAMAX PLUS D [Suspect]
     Indication: OSTEOPENIA
     Route: 048
     Dates: start: 20060401, end: 20091001
  6. FOSAMAX [Suspect]
     Indication: OSTEOPENIA
     Route: 048
     Dates: start: 19990101, end: 20060301
  7. FOSAMAX [Suspect]
     Route: 048
     Dates: start: 20091101, end: 20100701
  8. VITAMIN D (UNSPECIFIED) [Concomitant]
     Indication: OSTEOPOROSIS POSTMENOPAUSAL
     Route: 065

REACTIONS (19)
  - TOOTH DISORDER [None]
  - SPINAL COMPRESSION FRACTURE [None]
  - SPONDYLOLISTHESIS [None]
  - SCOLIOSIS [None]
  - INTERVERTEBRAL DISC DEGENERATION [None]
  - FEMUR FRACTURE [None]
  - FALL [None]
  - PAIN IN EXTREMITY [None]
  - LIGAMENT SPRAIN [None]
  - HYPERCHOLESTEROLAEMIA [None]
  - CAUDA EQUINA SYNDROME [None]
  - ELECTROCARDIOGRAM T WAVE ABNORMAL [None]
  - SCIATICA [None]
  - THERMAL BURN [None]
  - OSTEOARTHRITIS [None]
  - FOOT FRACTURE [None]
  - BACK PAIN [None]
  - LIMB ASYMMETRY [None]
  - ECCHYMOSIS [None]
